FAERS Safety Report 12509561 (Version 2)
Quarter: 2016Q3

REPORT INFORMATION
  Report Type: Spontaneous
  Country: US (occurrence: US)
  Receive Date: 20160629
  Receipt Date: 20160708
  Transmission Date: 20161109
  Serious: Yes (Death, Hospitalization)
  Sender: FDA-Public Use
  Company Number: US-FRESENIUS KABI-FK201603970

PATIENT
  Age: 75 Year
  Sex: Male

DRUGS (1)
  1. FLUOROURACIL INJECTION, USP [Suspect]
     Active Substance: FLUOROURACIL
     Indication: PANCREATIC CARCINOMA METASTATIC
     Route: 040

REACTIONS (5)
  - Duodenal ulcer perforation [Fatal]
  - Pancytopenia [Fatal]
  - Lacunar infarction [Fatal]
  - Hypertension [Fatal]
  - Haemorrhage [Fatal]
